FAERS Safety Report 9166630 (Version 1)
Quarter: 2013Q1

REPORT INFORMATION
  Report Type: Spontaneous
  Country: US (occurrence: US)
  Receive Date: 20130315
  Receipt Date: 20130315
  Transmission Date: 20140127
  Serious: No
  Sender: FDA-Public Use
  Company Number: US-009507513-1302USA010798

PATIENT
  Age: 7 Year
  Sex: Female
  Weight: 24.94 kg

DRUGS (3)
  1. CLARITIN ORAL SOLUTION [Suspect]
     Indication: HYPERSENSITIVITY
     Dosage: 1 DF, QD
     Route: 048
  2. CLARITIN ORAL SOLUTION [Suspect]
     Indication: RASH
     Dosage: 1 DF, ONCE
     Route: 048
     Dates: start: 20130220
  3. CLARITIN ORAL SOLUTION [Suspect]
     Dosage: 1 DF, ONCE
     Route: 048
     Dates: start: 20130220

REACTIONS (2)
  - Inappropriate schedule of drug administration [Not Recovered/Not Resolved]
  - Off label use [Unknown]
